FAERS Safety Report 7165928-0 (Version None)
Quarter: 2010Q4

REPORT INFORMATION
  Report Type: 
  Country: None (occurrence: None)
  Receive Date: 20101216
  Receipt Date: 20101201
  Transmission Date: 20110411
  Serious: No
  Sender: FDA-Public Use
  Company Number: US-BIOGENIDEC-2010BI010927

PATIENT
  Sex: Female

DRUGS (7)
  1. TYSABRI [Suspect]
     Indication: MULTIPLE SCLEROSIS
     Route: 042
     Dates: start: 20091013, end: 20100302
  2. AVONEX [Concomitant]
     Indication: MULTIPLE SCLEROSIS
     Route: 030
  3. CLONAZEPAM [Concomitant]
  4. NAPROSYN [Concomitant]
  5. MAXALT [Concomitant]
  6. PREMARIN [Concomitant]
  7. ZANTAC [Concomitant]

REACTIONS (28)
  - AMNESIA [None]
  - ASTHENIA [None]
  - CARPAL TUNNEL SYNDROME [None]
  - CHILLS [None]
  - DEPRESSION [None]
  - DIZZINESS [None]
  - DRUG HYPERSENSITIVITY [None]
  - FATIGUE [None]
  - FEELING ABNORMAL [None]
  - HALLUCINATION, VISUAL [None]
  - HEADACHE [None]
  - HEART RATE INCREASED [None]
  - HEART RATE IRREGULAR [None]
  - HYPERTENSION [None]
  - HYPERTENSIVE CRISIS [None]
  - MIGRAINE [None]
  - MOBILITY DECREASED [None]
  - MUSCLE SPASMS [None]
  - MUSCLE TIGHTNESS [None]
  - MYALGIA [None]
  - MYOFASCIAL PAIN SYNDROME [None]
  - NEUROPATHY PERIPHERAL [None]
  - PAIN [None]
  - RASH ERYTHEMATOUS [None]
  - RASH PRURITIC [None]
  - SENSORY DISTURBANCE [None]
  - SOMNOLENCE [None]
  - TREMOR [None]
